FAERS Safety Report 5860591-0 (Version None)
Quarter: 2008Q3

REPORT INFORMATION
  Report Type: 
  Country: None (occurrence: None)
  Receive Date: 20080827
  Receipt Date: 20071029
  Transmission Date: 20090109
  Serious: No
  Sender: FDA-Public Use
  Company Number: US-ABBOTT-07P-163-0422415-00

PATIENT
  Sex: Female

DRUGS (8)
  1. NIASPAN [Suspect]
     Indication: BLOOD CHOLESTEROL INCREASED
     Route: 048
  2. NIASPAN [Suspect]
     Route: 048
     Dates: start: 20070601
  3. NIASPAN [Suspect]
     Route: 048
  4. NIASPAN [Suspect]
  5. ASPIRIN AND DIPYRIDAMOLE [Concomitant]
     Indication: ANTICOAGULANT THERAPY
  6. VALSARTAN [Concomitant]
     Indication: BLOOD PRESSURE
  7. SIMVASTATIN [Concomitant]
     Indication: BLOOD CHOLESTEROL
  8. ASTMANEX [Concomitant]
     Indication: ASTHMA

REACTIONS (1)
  - DYSURIA [None]
